FAERS Safety Report 17482402 (Version 1)
Quarter: 2020Q1

REPORT INFORMATION
  Report Type: Spontaneous
  Country: US (occurrence: US)
  Receive Date: 20200302
  Receipt Date: 20200302
  Transmission Date: 20200409
  Serious: No
  Sender: FDA-Public Use
  Company Number: US-MYLANLABS-2020M1019801

PATIENT
  Sex: Male
  Weight: 107 kg

DRUGS (4)
  1. FENTANYL TRANSDERMAL SYSTEM [Suspect]
     Active Substance: FENTANYL
     Indication: STENOSIS
  2. OXYCODONE/APAP                     /00867901/ [Concomitant]
     Active Substance: ACETAMINOPHEN\OXYCODONE HYDROCHLORIDE
     Dosage: UNK
  3. FENTANYL TRANSDERMAL SYSTEM [Suspect]
     Active Substance: FENTANYL
     Indication: ARTHRITIS
     Dosage: UNK ONE EVERY 72 HOURS
     Route: 062
  4. FENTANYL TRANSDERMAL SYSTEM [Suspect]
     Active Substance: FENTANYL
     Indication: SPINAL LAMINECTOMY

REACTIONS (7)
  - Drug ineffective [Unknown]
  - Wrong technique in product usage process [Unknown]
  - Rash erythematous [Unknown]
  - Skin irritation [Unknown]
  - Product adhesion issue [Unknown]
  - Application site pruritus [Unknown]
  - Scratch [Unknown]
